FAERS Safety Report 20917385 (Version 1)
Quarter: 2022Q2

REPORT INFORMATION
  Report Type: Spontaneous
  Country: NL (occurrence: NL)
  Receive Date: 20220606
  Receipt Date: 20220606
  Transmission Date: 20220721
  Serious: Yes (Death, Hospitalization)
  Sender: FDA-Public Use
  Company Number: None

PATIENT
  Age: 73 Year
  Sex: Male
  Weight: 57 kg

DRUGS (16)
  1. PREDNISOLONE [Suspect]
     Active Substance: PREDNISOLONE
     Indication: Immune-mediated hepatitis
     Dosage: 1DD 1 (IN FINISHING SCHEDULE) / BRAND NAME NOT SPECIFIED ,THERAPY END DATE : ASKU , FORM STRENGTH 20
     Dates: start: 202009
  2. CLOPIDOGREL [Concomitant]
     Active Substance: CLOPIDOGREL BISULFATE
     Dosage: 75 MG (MILLIGRAM) ,  BRAND NAME NOT SPECIFIED ,THERAPY START DATE AND END DATE : ASKU , FORM STRENG
  3. SPIRONOLACTONE [Concomitant]
     Active Substance: SPIRONOLACTONE
     Dosage: 25 MG (MILLIGRAM) ,BRAND NAME NOT SPECIFIED, FORM STRENGTH : 25 MG ,THERAPY START DATE AND END DATE
  4. SODIUM CHLORIDE [Concomitant]
     Active Substance: SODIUM CHLORIDE
     Dosage: NEBULIZER FLUID,  , NATRIUMCHLORIDE  VERNEVELVLST  9MG/ML(0,9%) / BRAND NAME NOT SPECIFIED , THERAPY
  5. METOPROLOL [Concomitant]
     Active Substance: METOPROLOL
     Dosage: REGULATED-RELEASE TABLET,  ,TABLET MGA  25MG (SUCCINAAT) / BRAND NAME NOT SPECIFIED ,THERAPY START D
  6. AMLODIPINE [Concomitant]
     Active Substance: AMLODIPINE BESYLATE
     Dosage: 5 MG (MILLIGRAM) ,TABLET   5MG / BRAND NAME NOT SPECIFIED ,THERAPY START DATE AND END DATE : ASKU ,
  7. FUROSEMIDE [Concomitant]
     Active Substance: FUROSEMIDE
     Dosage: 20 MG (MILLIGRAM) , TABLET 20MG / BRAND NAME NOT SPECIFIED ,THERAPY START DATE AND END DATE : ASKU ,
  8. SIMVASTATIN [Concomitant]
     Active Substance: SIMVASTATIN
     Dosage: 40 MG (MILLIGRAM) , TABLET FO 40MG / BRAND NAME NOT SPECIFIED ,THERAPY START DATE AND END DATE : AS
  9. COMBIVENT [Concomitant]
     Active Substance: ALBUTEROL SULFATE\IPRATROPIUM BROMIDE
     Dosage: NEBULIZER,  1/0,2 MG/ML (MILLIGRAM PER MILLILITER) , SALBUTAMOL/IPRATROPIUM NEBULIZER VST 1/0.2MG/ML
  10. OXYCODONE HYDROCHLORIDE [Concomitant]
     Active Substance: OXYCODONE HYDROCHLORIDE
     Dosage: FORM STRENGTH 10 MG (MILLIGRAM) ,OXYCODON CAPSULE 10MG / OXYNORM CAPSULE 10MG ,THERAPY START DATE AN
  11. ACETAMINOPHEN [Concomitant]
     Active Substance: ACETAMINOPHEN
     Dosage: 500 MG (MILLIGRAM) , BRAND NAME NOT SPECIFIED, FORM STRENGTH : 500 MG
  12. POLYETHYLENE GLYCOLS [Concomitant]
     Active Substance: POLYETHYLENE GLYCOLS
     Dosage: POWDER FOR BEVERAGE ,  POWDER FOR ORAL SOLUTION IN SACHET ,THERAPY START DATE AND END DATE : ASKU, M
  13. CARBOPLATIN [Concomitant]
     Active Substance: CARBOPLATIN
     Dosage: INFUSION ,  1 MG/MG (MILLIGRAM PER MILLIGRAM) ,CARBOPLATIN INFUSION / BRAND NAME NOT SPECIFIED,THERA
  14. PANTOPRAZOLE SODIUM [Concomitant]
     Active Substance: PANTOPRAZOLE SODIUM
     Dosage: 40 MG (MILLIGRAM) , TABLET MSR 40MG / BRAND NAME NOT SPECIFIED ,THERAPY START DATE AND END DATE : A
  15. GEMCITABINE [Concomitant]
     Active Substance: GEMCITABINE
     Dosage: DRIP, 1 MG/MG (MILLIGRAM PER MILLIGRAM) ,INFUUS / BRAND NAME NOT SPECIFIED ,THERAPY START DATE AND E
  16. ENALAPRIL [Concomitant]
     Active Substance: ENALAPRIL
     Dosage: 20 MG (MILLIGRAM),BRAND NAME NOT SPECIFIED , THERAPY START DATE AND END DATE : ASKU , FORM STRENGTH

REACTIONS (2)
  - Sepsis [Fatal]
  - Pneumocystis jirovecii pneumonia [Fatal]

NARRATIVE: CASE EVENT DATE: 20210208
